FAERS Safety Report 12050123 (Version 3)
Quarter: 2016Q1

REPORT INFORMATION
  Report Type: Spontaneous
  Country: US (occurrence: US)
  Receive Date: 20160208
  Receipt Date: 20160218
  Transmission Date: 20160526
  Serious: Yes (Death, Other)
  Sender: FDA-Public Use
  Company Number: US-TAKEDA-TPA2013A05253

PATIENT

DRUGS (11)
  1. GLUCOTROL [Concomitant]
     Active Substance: GLIPIZIDE
     Dosage: 5 MG, UNK
     Dates: start: 19990614, end: 20000916
  2. GLUCOPHAGE [Concomitant]
     Active Substance: METFORMIN HYDROCHLORIDE
     Dosage: 1000 MG, UNK
     Dates: start: 20000718, end: 20020903
  3. METFORMIN [Concomitant]
     Active Substance: METFORMIN HYDROCHLORIDE
     Dosage: 1000 MG, UNK
  4. GLUCOVANCE [Concomitant]
     Active Substance: GLYBURIDE\METFORMIN HYDROCHLORIDE
     Dates: start: 20040115, end: 20050521
  5. ACTOS [Suspect]
     Active Substance: PIOGLITAZONE HYDROCHLORIDE
     Indication: TYPE 2 DIABETES MELLITUS
     Dosage: 45 MG, UNK
     Route: 048
     Dates: start: 200009, end: 200301
  6. LISPRO INSULIN [Concomitant]
     Active Substance: INSULIN LISPRO
     Dosage: 100 IU, UNK
     Dates: start: 20001212, end: 20010518
  7. HUMULIN NOS [Concomitant]
     Active Substance: INSULIN HUMAN
     Dosage: 100 IU, UNK
     Dates: start: 20001212, end: 20010518
  8. METFORMIN [Concomitant]
     Active Substance: METFORMIN HYDROCHLORIDE
     Dosage: 1000 MG, UNK
     Dates: start: 20020805, end: 20040313
  9. PRANDIN                            /01393601/ [Concomitant]
     Dosage: 2 MG, UNK
     Dates: start: 20000718, end: 20040923
  10. LISPRO INSULIN [Concomitant]
     Active Substance: INSULIN LISPRO
     Dates: start: 20040405, end: 20040425
  11. GLUCOPHAGE [Concomitant]
     Active Substance: METFORMIN HYDROCHLORIDE
     Dosage: 850 MG, UNK
     Dates: start: 19990614, end: 20000822

REACTIONS (2)
  - Bladder cancer [Not Recovered/Not Resolved]
  - Death [Fatal]

NARRATIVE: CASE EVENT DATE: 20080110
